FAERS Safety Report 15369278 (Version 1)
Quarter: 2018Q3

REPORT INFORMATION
  Report Type: Spontaneous
  Country: US (occurrence: US)
  Receive Date: 20180911
  Receipt Date: 20180911
  Transmission Date: 20181010
  Serious: No
  Sender: FDA-Public Use
  Company Number: US-ASTRAZENECA-2018SF03290

PATIENT
  Sex: Male

DRUGS (7)
  1. FUROSEMIDE. [Concomitant]
     Active Substance: FUROSEMIDE
  2. ASPIRIN. [Concomitant]
     Active Substance: ASPIRIN
  3. CRESTOR [Suspect]
     Active Substance: ROSUVASTATIN CALCIUM
     Dosage: DAILY
     Route: 048
  4. CRESTOR [Suspect]
     Active Substance: ROSUVASTATIN CALCIUM
     Dosage: EVERY THREE DAYS
     Route: 048
  5. CARVEDILOL. [Concomitant]
     Active Substance: CARVEDILOL
  6. RUXOLITINIB [Suspect]
     Active Substance: RUXOLITINIB
     Indication: POLYCYTHAEMIA VERA
     Route: 048
  7. RUXOLITINIB [Suspect]
     Active Substance: RUXOLITINIB
     Indication: POLYCYTHAEMIA VERA
     Route: 048
     Dates: start: 201712

REACTIONS (8)
  - Mean cell volume decreased [Unknown]
  - Skin atrophy [Unknown]
  - Fatigue [Unknown]
  - Thinking abnormal [Unknown]
  - Back pain [Unknown]
  - Anger [Unknown]
  - Platelet count increased [Unknown]
  - Increased tendency to bruise [Unknown]
